FAERS Safety Report 10437860 (Version 4)
Quarter: 2014Q4

REPORT INFORMATION
  Report Type: Spontaneous
  Country: PL (occurrence: None)
  Receive Date: 20140904
  Receipt Date: 20141112
  Transmission Date: 20150528
  Serious: Yes (Life-Threatening)
  Sender: FDA-Public Use
  Company Number: 20140592

PATIENT
  Age: 2 Week
  Sex: Male
  Weight: 4.15 kg

DRUGS (19)
  1. ATROPINE [Concomitant]
     Active Substance: ATROPINE
  2. SEVOFLURAN [Concomitant]
     Active Substance: SEVOFLURANE
  3. MIDAZOLAM [Concomitant]
     Active Substance: MIDAZOLAM\MIDAZOLAM HYDROCHLORIDE
  4. NYSTATIN. [Concomitant]
     Active Substance: NYSTATIN
  5. LAKCID [Concomitant]
  6. MORPHINE [Concomitant]
     Active Substance: MORPHINE
  7. VANCOMYCIN [Concomitant]
     Active Substance: VANCOMYCIN
  8. HYDROCORTISONE. [Concomitant]
     Active Substance: HYDROCORTISONE
  9. ULTIVA (REMIFENTANIL) [Concomitant]
  10. DICOFLOR [Concomitant]
  11. THEOPHYLLINE [Concomitant]
     Active Substance: THEOPHYLLINE ANHYDROUS
  12. SPRIX [Suspect]
     Active Substance: KETOROLAC TROMETHAMINE
     Indication: PROCEDURAL PAIN
     Dosage: 3.15 MG 4 TIMES DAILY
     Dates: start: 20140822, end: 20140822
  13. FUROSEMIDE. [Concomitant]
     Active Substance: FUROSEMIDE
  14. VITAMIN D3 AND POTASSIUM [Concomitant]
  15. SPRIX [Suspect]
     Active Substance: KETOROLAC TROMETHAMINE
     Indication: CONGENITAL HYDRONEPHROSIS
     Dosage: 3.15 MG 4 TIMES DAILY
     Dates: start: 20140822, end: 20140822
  16. MERONEM [Concomitant]
     Active Substance: MEROPENEM
  17. DIFLUCAN [Concomitant]
     Active Substance: FLUCONAZOLE
  18. NIMBEX (CISATRACURIUM BESYLATE) [Concomitant]
  19. SCOLINE  (SUXAMETHONIUM CHLORIDE) [Concomitant]

REACTIONS (1)
  - Respiratory distress [None]

NARRATIVE: CASE EVENT DATE: 20140822
